FAERS Safety Report 4879157-4 (Version None)
Quarter: 2006Q1

REPORT INFORMATION
  Report Type: 
  Country: None (occurrence: None)
  Receive Date: 20060112
  Receipt Date: 20060109
  Transmission Date: 20060701
  Serious: Yes (Life-Threatening, Hospitalization, Disabling)
  Sender: FDA-Public Use
  Company Number: GB-ROCHE-431473

PATIENT
  Age: 61 Year
  Sex: Female
  Weight: 82 kg

DRUGS (4)
  1. ORLISTAT [Suspect]
     Indication: OBESITY
     Route: 048
     Dates: start: 20050601, end: 20051017
  2. RANITIDINE [Concomitant]
     Route: 065
     Dates: start: 20051205
  3. DIAZEPAM [Concomitant]
     Route: 065
     Dates: start: 20051219
  4. ZOPICLONE [Concomitant]
     Indication: SOMNOLENCE
     Route: 065
     Dates: end: 20051017

REACTIONS (1)
  - ASCITES [None]
